FAERS Safety Report 21802104 (Version 1)
Quarter: 2022Q4

REPORT INFORMATION
  Report Type: Spontaneous
  Country: US (occurrence: US)
  Receive Date: 20221230
  Receipt Date: 20221230
  Transmission Date: 20230113
  Serious: No
  Sender: FDA-Public Use
  Company Number: US-ACORDA-ACO_172240_2022

PATIENT
  Sex: Female

DRUGS (15)
  1. INBRIJA [Suspect]
     Active Substance: LEVODOPA
     Indication: Parkinson^s disease
     Dosage: 84 MILLIGRAM,PRN (NOT TO EXCEED 5 DOSES PER DAY)
     Dates: start: 20211216
  2. INBRIJA [Suspect]
     Active Substance: LEVODOPA
     Indication: On and off phenomenon
     Dosage: UNK
  3. INBRIJA [Suspect]
     Active Substance: LEVODOPA
     Dosage: UNK
  4. INBRIJA [Suspect]
     Active Substance: LEVODOPA
     Dosage: UNK
  5. INBRIJA [Suspect]
     Active Substance: LEVODOPA
     Dosage: UNK
  6. INBRIJA [Suspect]
     Active Substance: LEVODOPA
     Dosage: UNK
  7. INBRIJA [Suspect]
     Active Substance: LEVODOPA
     Dosage: UNK
  8. ALLEVESS [Concomitant]
     Active Substance: CAPSAICIN\MENTHOL
     Indication: Product used for unknown indication
     Dosage: UNK
     Route: 065
  9. CALCIUM [Concomitant]
     Active Substance: CALCIUM
     Indication: Product used for unknown indication
     Dosage: UNK
     Route: 065
  10. VITAMIN D3 [Concomitant]
     Active Substance: CHOLECALCIFEROL
     Indication: Product used for unknown indication
     Dosage: UNK
     Route: 065
  11. MAGNESIUM [Concomitant]
     Active Substance: MAGNESIUM
     Indication: Product used for unknown indication
     Dosage: UNK
     Route: 065
  12. MELATONIN [Concomitant]
     Active Substance: MELATONIN
     Indication: Product used for unknown indication
     Dosage: UNK
     Route: 065
  13. RYTARY [Concomitant]
     Active Substance: CARBIDOPA\LEVODOPA
     Indication: Product used for unknown indication
     Dosage: UNK
     Route: 065
  14. SINEMET [Concomitant]
     Active Substance: CARBIDOPA\LEVODOPA
     Indication: Product used for unknown indication
     Dosage: UNK
     Route: 065
  15. CARBIDOPA\LEVODOPA [Concomitant]
     Active Substance: CARBIDOPA\LEVODOPA
     Indication: Product used for unknown indication
     Dosage: 25/100 MG, 3 TIMES PER DAY
     Route: 065

REACTIONS (7)
  - Device occlusion [Unknown]
  - Product physical issue [Unknown]
  - Device malfunction [Unknown]
  - Device issue [Unknown]
  - Product use issue [Unknown]
  - Device delivery system issue [Unknown]
  - Incorrect dose administered by device [Unknown]
